FAERS Safety Report 22273421 (Version 1)
Quarter: 2023Q2

REPORT INFORMATION
  Report Type: Spontaneous
  Country: GB (occurrence: GB)
  Receive Date: 20230502
  Receipt Date: 20230502
  Transmission Date: 20230722
  Serious: Yes (Death, Life-Threatening, Hospitalization, Other)
  Sender: FDA-Public Use
  Company Number: None

PATIENT
  Age: 71 Year
  Sex: Female
  Weight: 51 kg

DRUGS (97)
  1. ZOPICLONE [Suspect]
     Active Substance: ZOPICLONE
     Indication: Prophylaxis
     Dosage: UNK, ONCE PER DAY
     Route: 065
     Dates: start: 20200731
  2. ZOPICLONE [Suspect]
     Active Substance: ZOPICLONE
     Dosage: 1 MG, ONCE PER DAY, (1 MG, QD)
     Route: 065
     Dates: start: 20200731
  3. ZOLMITRIPTAN [Suspect]
     Active Substance: ZOLMITRIPTAN
     Indication: Pain
     Dosage: UNK, ONCE PER DAY
     Route: 065
  4. AMLODIPINE [Suspect]
     Active Substance: AMLODIPINE BESYLATE
     Indication: Hypertension
     Dosage: UNK, ONCE PER DAY
     Route: 065
  5. AMLODIPINE [Suspect]
     Active Substance: AMLODIPINE BESYLATE
     Dosage: UNK, ONCE PER DAY
     Route: 065
  6. AMLODIPINE [Suspect]
     Active Substance: AMLODIPINE BESYLATE
     Dosage: UNK, ONCE PER DAY
     Route: 065
  7. AMLODIPINE [Suspect]
     Active Substance: AMLODIPINE BESYLATE
     Dosage: UNK, ONCE PER DAY
     Route: 065
  8. AMLODIPINE [Suspect]
     Active Substance: AMLODIPINE BESYLATE
     Dosage: UNK, ONCE PER DAY
     Route: 065
  9. AMLODIPINE [Suspect]
     Active Substance: AMLODIPINE BESYLATE
     Dosage: 1 MG, ONCE PER DAY
     Route: 065
  10. AMLODIPINE [Suspect]
     Active Substance: AMLODIPINE BESYLATE
     Dosage: UNK, ONCE PER DAY
     Route: 065
  11. AMLODIPINE [Suspect]
     Active Substance: AMLODIPINE BESYLATE
     Dosage: UNK, ONCE PER DAY
     Route: 065
  12. AMLODIPINE [Suspect]
     Active Substance: AMLODIPINE BESYLATE
     Dosage: UNK, ONCE PER DAY
     Route: 065
  13. AMOXICILLIN [Suspect]
     Active Substance: AMOXICILLIN
     Indication: Product used for unknown indication
     Dosage: UNK, ONCE PER DAY
     Route: 065
     Dates: start: 20200810, end: 20200816
  14. AMOXICILLIN [Suspect]
     Active Substance: AMOXICILLIN
     Dosage: UNK, 4 TIMES PER DAY
     Route: 065
     Dates: start: 20200810, end: 20200816
  15. AMOXICILLIN [Suspect]
     Active Substance: AMOXICILLIN
     Dosage: 1 DOSAGE FORM, PER WEEK, (UNK, QW)
     Route: 065
     Dates: start: 20200810, end: 20200816
  16. ATEZOLIZUMAB [Suspect]
     Active Substance: ATEZOLIZUMAB
     Indication: Non-small cell lung cancer
     Dosage: 1200 MG, UNK (1200 MG, EVERY 3 WEEKS; MOST RECENT DOSE OF ATEZOLIZUMAB PRIOR TO ADVERSE EVENT ONSET
     Route: 042
     Dates: start: 20200729
  17. ATEZOLIZUMAB [Suspect]
     Active Substance: ATEZOLIZUMAB
     Indication: Transitional cell carcinoma
     Dosage: 1200 MG,  TIW
     Route: 042
     Dates: start: 20200819
  18. ATEZOLIZUMAB [Suspect]
     Active Substance: ATEZOLIZUMAB
     Indication: Small cell lung cancer
     Dosage: UNK,  UNK
  19. ATEZOLIZUMAB [Suspect]
     Active Substance: ATEZOLIZUMAB
  20. CARBOPLATIN [Suspect]
     Active Substance: CARBOPLATIN
     Indication: Non-small cell lung cancer
     Dosage: UNK,  UNK (ENDOTRACHEOPULMONARY INSTILLATION, POWDER FOR SOLUTION 450 MG, ONCE PER DAY)
     Route: 065
     Dates: start: 20200729
  21. CARBOPLATIN [Suspect]
     Active Substance: CARBOPLATIN
     Dosage: 450 MG, ONCE PER DAY
     Route: 065
     Dates: start: 20200729
  22. CIPROFLOXACIN [Suspect]
     Active Substance: CIPROFLOXACIN
     Indication: Prophylaxis
     Dosage: UNK, 2 TIMES PER DAY
     Route: 065
     Dates: start: 20200827
  23. CIPROFLOXACIN [Suspect]
     Active Substance: CIPROFLOXACIN
     Dosage: UNK
     Route: 065
  24. CIPROFLOXACIN [Suspect]
     Active Substance: CIPROFLOXACIN
     Dosage: UNK,  UNK (0.5 DAY)
     Route: 065
     Dates: start: 20200827
  25. CIPROFLOXACIN [Suspect]
     Active Substance: CIPROFLOXACIN
     Dosage: 2 DOSAGE FORM, ONCE PER DAY
     Route: 065
     Dates: start: 20200827
  26. CLOPIDOGREL [Suspect]
     Active Substance: CLOPIDOGREL BISULFATE
     Indication: Hypertension
     Dosage: UNK, ONCE PER DAY
     Route: 065
     Dates: start: 20200827
  27. CLOPIDOGREL [Suspect]
     Active Substance: CLOPIDOGREL BISULFATE
     Dosage: 1 DOSAGE FORM, ONCE PER DAY
     Route: 065
  28. CLOPIDOGREL [Suspect]
     Active Substance: CLOPIDOGREL BISULFATE
     Dosage: UNK,UNK
     Route: 065
  29. CLOPIDOGREL [Suspect]
     Active Substance: CLOPIDOGREL BISULFATE
     Dosage: UNK,UNK
     Route: 065
  30. CYCLIZINE [Suspect]
     Active Substance: CYCLIZINE
     Indication: Vomiting
     Dosage: UNK,  UNK (1 IN 0.3 DAY)
     Route: 065
  31. CYCLIZINE [Suspect]
     Active Substance: CYCLIZINE
     Indication: Neutropenic sepsis
     Dosage: UNK, 2 TIMES PER DAY
     Route: 065
  32. CYCLIZINE [Suspect]
     Active Substance: CYCLIZINE
     Dosage: UNK, 4 TIMES PER DAY, (UNK, QID (0.25 DAY)
     Route: 065
  33. CYCLIZINE [Suspect]
     Active Substance: CYCLIZINE
     Dosage: 4 MG, ONCE PER DAY
     Route: 065
  34. DEXAMETHASONE [Suspect]
     Active Substance: DEXAMETHASONE
     Indication: Dysphagia
     Dosage: UNK,  ONCE PER DAY
     Route: 065
     Dates: start: 20200826
  35. DEXAMETHASONE [Suspect]
     Active Substance: DEXAMETHASONE
     Indication: Prophylaxis
     Dosage: UNK, 2 TIMES PER DAY, (1 IN 0.5 DAYS)
     Route: 065
  36. BENZYDAMINE [Suspect]
     Active Substance: BENZYDAMINE
     Indication: Prophylaxis
     Dosage: UNK, UNK
     Route: 065
     Dates: start: 20200819
  37. ETOPOSIDE [Suspect]
     Active Substance: ETOPOSIDE
     Indication: Non-small cell lung cancer
     Dosage: 600 MG, ONCE PER DAY
     Route: 048
     Dates: start: 20200730
  38. ETOPOSIDE [Suspect]
     Active Substance: ETOPOSIDE
     Dosage: 148 MG,  ONCE PER DAY (INTRAVENOUS OTHERWISE NOT SPECIFIED)
     Route: 042
     Dates: start: 20200729
  39. ETOPOSIDE [Suspect]
     Active Substance: ETOPOSIDE
     Dosage: UNK,  UNK
     Route: 016
  40. FLUCONAZOLE [Suspect]
     Active Substance: FLUCONAZOLE
     Indication: Candida infection
     Dosage: UNK, ONCE PER DAY
     Route: 065
  41. FLUCONAZOLE [Suspect]
     Active Substance: FLUCONAZOLE
     Dosage: UNK, UNK
     Route: 065
  42. FORMOTEROL [Suspect]
     Active Substance: FORMOTEROL
     Indication: Hypertension
     Dosage: UNK, UNK (QD)
     Route: 065
     Dates: start: 20200301
  43. FORMOTEROL [Suspect]
     Active Substance: FORMOTEROL
     Indication: Product used for unknown indication
     Dosage: UNK, UNK (1 IN 0.5 DAYS)
     Route: 065
     Dates: start: 20200301
  44. FORMOTEROL [Suspect]
     Active Substance: FORMOTEROL
     Dosage: 0.5 MG, 0.5 DAY
     Route: 065
     Dates: start: 20200301
  45. FORMOTEROL [Suspect]
     Active Substance: FORMOTEROL
     Dosage: 1 MG, 2 TIMES PER DAY
     Route: 065
     Dates: start: 20200301
  46. LACTULOSE [Suspect]
     Active Substance: LACTULOSE
     Indication: Prophylaxis
     Dosage: UNK, 0.5 DAY
     Route: 065
  47. LACTULOSE [Suspect]
     Active Substance: LACTULOSE
     Dosage: UNK, 2 TIMES PER DAY (Q12H)
     Route: 065
  48. LACTULOSE [Suspect]
     Active Substance: LACTULOSE
     Dosage: UNK, 2 TIMES PER DAY
     Route: 065
  49. LACTULOSE [Suspect]
     Active Substance: LACTULOSE
     Dosage: UNK, ONCE PER DAY
     Route: 065
  50. LACTULOSE [Suspect]
     Active Substance: LACTULOSE
     Dosage: UNK, ONCE PER DAY (QD)
     Route: 065
  51. LACTULOSE [Suspect]
     Active Substance: LACTULOSE
     Dosage: UNK, ONCE PER DAY (QD)
     Route: 065
  52. LACTULOSE [Suspect]
     Active Substance: LACTULOSE
     Dosage: UNK, 2 TIMES PER DAY
     Route: 065
  53. LACTULOSE [Suspect]
     Active Substance: LACTULOSE
     Dosage: UNK, 2 TIMES PER DAY
     Route: 065
  54. LACTULOSE [Suspect]
     Active Substance: LACTULOSE
     Dosage: UNK, 2 TIMES PER DAY
     Route: 065
  55. LACTULOSE [Suspect]
     Active Substance: LACTULOSE
     Dosage: UNK, ONCE PER DAY (QD)
     Route: 065
  56. LACTULOSE [Suspect]
     Active Substance: LACTULOSE
     Dosage: UNK, ONCE PER DAY (QD)
     Route: 065
  57. LANSOPRAZOLE [Suspect]
     Active Substance: LANSOPRAZOLE
     Indication: Prophylaxis
     Dosage: UNK, ONCE PER DAY
     Route: 065
     Dates: start: 20170101
  58. LANSOPRAZOLE [Suspect]
     Active Substance: LANSOPRAZOLE
     Dosage: 1 MG, ONCE PER DAY, (1 MG, QD)
     Route: 065
     Dates: start: 20170101
  59. LINEZOLID [Suspect]
     Active Substance: LINEZOLID
     Indication: Neutropenic sepsis
     Dosage: UNK, UNK
     Route: 065
     Dates: start: 20200830
  60. LINEZOLID [Suspect]
     Active Substance: LINEZOLID
     Route: 065
     Dates: start: 20200830
  61. ORAMORPH SR SUSTAINED RELEASE [Suspect]
     Active Substance: MORPHINE SULFATE
     Indication: Prophylaxis
     Dosage: 1 UNK, ONCE PER DAY
     Route: 065
     Dates: start: 20200727
  62. ORAMORPH SR SUSTAINED RELEASE [Suspect]
     Active Substance: MORPHINE SULFATE
     Indication: Pain
     Dosage: UNK, UNK
     Route: 065
     Dates: start: 20200825
  63. ORAMORPH SR SUSTAINED RELEASE [Suspect]
     Active Substance: MORPHINE SULFATE
     Dosage: UNK , 0.5 DAY
     Route: 065
     Dates: start: 20200731
  64. ORAMORPH SR SUSTAINED RELEASE [Suspect]
     Active Substance: MORPHINE SULFATE
     Dosage: UNK, ONCE PER DAY
     Route: 065
     Dates: start: 20200731
  65. ORAMORPH SR SUSTAINED RELEASE [Suspect]
     Active Substance: MORPHINE SULFATE
     Dosage: UNK,  ONCE PER DAY
     Route: 065
     Dates: start: 20200727
  66. ORAMORPH SR SUSTAINED RELEASE [Suspect]
     Active Substance: MORPHINE SULFATE
     Dosage: UNK, ONCE PER DAY, (UNK UNK, QD)
     Route: 065
     Dates: start: 20200825
  67. MORPHINE SULFATE [Suspect]
     Active Substance: MORPHINE SULFATE
     Indication: Pain
     Dosage: 1 MG, ONCE PER DAY
     Route: 065
     Dates: start: 20200727
  68. MORPHINE SULFATE [Suspect]
     Active Substance: MORPHINE SULFATE
     Indication: Product used for unknown indication
  69. ALBUTEROL [Suspect]
     Active Substance: ALBUTEROL
     Indication: Prophylaxis
     Dosage: UNK, UNK
     Route: 065
  70. ACETAMINOPHEN\CODEINE PHOSPHATE [Suspect]
     Active Substance: ACETAMINOPHEN\CODEINE PHOSPHATE
     Indication: Pain
     Dosage: UNK, 0.5 DAY
     Route: 065
  71. ACETAMINOPHEN\CODEINE PHOSPHATE [Suspect]
     Active Substance: ACETAMINOPHEN\CODEINE PHOSPHATE
     Indication: Headache
     Dosage: UNK, 2 TIMES PER DAY
     Route: 065
  72. ACETAMINOPHEN\CODEINE PHOSPHATE [Suspect]
     Active Substance: ACETAMINOPHEN\CODEINE PHOSPHATE
     Dosage: UNK, ONCE PER DAY
  73. ACETAMINOPHEN\CODEINE PHOSPHATE [Suspect]
     Active Substance: ACETAMINOPHEN\CODEINE PHOSPHATE
     Dosage: 0.5 MG, ONCE PER DAY
     Route: 065
  74. ACETAMINOPHEN\CODEINE PHOSPHATE [Suspect]
     Active Substance: ACETAMINOPHEN\CODEINE PHOSPHATE
     Dosage: UNK
     Route: 065
  75. SPIRIVA [Suspect]
     Active Substance: TIOTROPIUM BROMIDE MONOHYDRATE
     Indication: Chronic obstructive pulmonary disease
     Dosage: UNK, ONCE PER DAY
     Route: 065
  76. SPIRIVA [Suspect]
     Active Substance: TIOTROPIUM BROMIDE MONOHYDRATE
     Dosage: 1 DOSAGE FORM, ONCE PER DAY, (1 DOSAGE FORM, QD)
     Route: 065
  77. VENLAFAXINE [Suspect]
     Active Substance: VENLAFAXINE HYDROCHLORIDE
     Indication: Depression
     Dosage: UNK, ONCE PER DAY
     Route: 065
  78. VENLAFAXINE [Suspect]
     Active Substance: VENLAFAXINE HYDROCHLORIDE
     Dosage: UNK, 0.5 DAY
     Route: 065
     Dates: start: 20200820
  79. VENLAFAXINE [Suspect]
     Active Substance: VENLAFAXINE HYDROCHLORIDE
     Dosage: UNK, ONCE PER DAY
     Route: 065
     Dates: start: 20200820
  80. VENLAFAXINE [Suspect]
     Active Substance: VENLAFAXINE HYDROCHLORIDE
     Dosage: UNK,  UNK
  81. VORICONAZOLE [Suspect]
     Active Substance: VORICONAZOLE
     Indication: Neutropenic sepsis
     Dosage: UNK, ONCE PER DAY
     Route: 065
     Dates: start: 20200830
  82. VORICONAZOLE [Suspect]
     Active Substance: VORICONAZOLE
     Dosage: 1 DOSAGE FORM, ONCE PER DAY, (1 DOSAGE FORM, QD)
     Route: 065
     Dates: start: 20200830
  83. TIOTROPIUM [Suspect]
     Active Substance: TIOTROPIUM
     Indication: Chronic obstructive pulmonary disease
     Dosage: UNK, ONCE PER DAY
  84. TIOTROPIUM [Suspect]
     Active Substance: TIOTROPIUM
     Dosage: UNK,  UNK
     Route: 065
  85. SANDO K                            /00209301/ [Concomitant]
     Indication: Prophylaxis
     Dosage: UNK, 2 TIMES PER DAY
     Dates: start: 20200819
  86. SANDO K                            /00209301/ [Concomitant]
     Dosage: UNK, 0.5 DAY
     Dates: start: 20200819
  87. SANDO K                            /00209301/ [Concomitant]
     Dosage: UNK,  UNK (5QD)
     Dates: start: 20200828, end: 20200901
  88. MAGNESIUM [Concomitant]
     Active Substance: MAGNESIUM
     Indication: Product used for unknown indication
     Dosage: UNK,  UNK
     Dates: start: 20200819, end: 20200819
  89. METOCLOPRAMIDE [Concomitant]
     Active Substance: METOCLOPRAMIDE
     Indication: Vomiting
     Dosage: UNK,  ONCE PER DAY
  90. METOCLOPRAMIDE [Concomitant]
     Active Substance: METOCLOPRAMIDE
     Dosage: 1 DOSAGE FORM, 4 TIMES PER DAY
     Route: 065
     Dates: start: 20200819, end: 20200819
  91. PHOSPHORIC ACID [Concomitant]
     Active Substance: PHOSPHORIC ACID
     Indication: Product used for unknown indication
     Dosage: UNK,  ONCE PER DAY
     Route: 065
     Dates: start: 20200825, end: 20200825
  92. PHOSPHORIC ACID [Concomitant]
     Active Substance: PHOSPHORIC ACID
     Dosage: UNK, 4 TIMES PER DAY
     Route: 065
     Dates: start: 20200825, end: 20200825
  93. ATEZOLIZUMAB [Concomitant]
     Active Substance: ATEZOLIZUMAB
     Indication: Product used for unknown indication
     Dosage: UNK,  UNK (INTRAVENOUS DRIP)
     Route: 042
  94. ONDANSETRON [Concomitant]
     Active Substance: ONDANSETRON
     Indication: Product used for unknown indication
     Dosage: 8 MG, UNK
     Dates: start: 20200729, end: 20200729
  95. POTASSIUM CHLORIDE [Concomitant]
     Active Substance: POTASSIUM CHLORIDE
     Indication: Prophylaxis
     Dosage: UNK,  UNK
     Route: 065
     Dates: start: 20200828
  96. POTASSIUM CHLORIDE [Concomitant]
     Active Substance: POTASSIUM CHLORIDE
     Dosage: UNK, ONCE PER DAY, (UNK UNK, QD (0.5))
     Route: 065
     Dates: start: 20200819
  97. POTASSIUM CHLORIDE [Concomitant]
     Active Substance: POTASSIUM CHLORIDE
     Dosage: UNK, 2 TIMES PER DAY, (UNK UNK, BID)
     Route: 065
     Dates: start: 20200819

REACTIONS (28)
  - Death [Fatal]
  - Mouth ulceration [Fatal]
  - Constipation [Fatal]
  - Hypomagnesaemia [Fatal]
  - Anaemia [Fatal]
  - Anaemia [Fatal]
  - Nausea [Fatal]
  - Headache [Fatal]
  - Dyspnoea [Fatal]
  - Dehydration [Fatal]
  - Mucosal inflammation [Fatal]
  - Vomiting [Not Recovered/Not Resolved]
  - Productive cough [Fatal]
  - Vomiting [Fatal]
  - Skin candida [Not Recovered/Not Resolved]
  - Hypomagnesaemia [Fatal]
  - Decreased appetite [Fatal]
  - Hypokalaemia [Fatal]
  - Neutropenic sepsis [Fatal]
  - Diarrhoea [Fatal]
  - Product use in unapproved indication [Fatal]
  - Dysphagia [Fatal]
  - Depression [Fatal]
  - Balance disorder [Fatal]
  - Asthenia [Fatal]
  - Gait disturbance [Fatal]
  - Nervous system disorder [Fatal]
  - Neutrophil count decreased [Fatal]

NARRATIVE: CASE EVENT DATE: 20200730
